FAERS Safety Report 8386303-7 (Version None)
Quarter: 2012Q2

REPORT INFORMATION
  Report Type: 
  Country: None (occurrence: None)
  Receive Date: 20120525
  Receipt Date: 20120516
  Transmission Date: 20120825
  Serious: Yes (Other)
  Sender: FDA-Public Use
  Company Number: JP-VERTEX PHARMACEUTICALS INC.-AE-2012-007673

PATIENT
  Age: 67 Year
  Sex: Male

DRUGS (10)
  1. OLMESARTAN MEDOXOMIL [Concomitant]
     Route: 048
  2. REBETOL [Concomitant]
     Indication: HEPATITIS C
     Route: 048
     Dates: start: 20120403, end: 20120408
  3. REBETOL [Concomitant]
     Route: 048
     Dates: start: 20120425
  4. ADALAT CC [Concomitant]
     Route: 048
  5. TELAVIC (TELAPREVIR) [Suspect]
     Route: 048
     Dates: start: 20120409, end: 20120430
  6. PEG-INTRON [Concomitant]
     Route: 058
     Dates: start: 20120424
  7. TELAVIC (TELAPREVIR) [Suspect]
     Indication: HEPATITIS C
     Route: 048
     Dates: start: 20120403, end: 20120408
  8. REBETOL [Concomitant]
     Route: 048
     Dates: start: 20120409, end: 20120424
  9. TELAVIC (TELAPREVIR) [Suspect]
     Route: 048
     Dates: start: 20120501
  10. PEG-INTRON [Concomitant]
     Indication: HEPATITIS C
     Route: 058
     Dates: start: 20120403, end: 20120417

REACTIONS (1)
  - RENAL IMPAIRMENT [None]
